APPROVED DRUG PRODUCT: PHOSLO GELCAPS
Active Ingredient: CALCIUM ACETATE
Strength: 667MG **Federal Register determination that product was not discontinued or withdrawn for safety or effectiveness reasons**
Dosage Form/Route: CAPSULE;ORAL
Application: N021160 | Product #003
Applicant: FRESENIUS MEDICAL CARE RENAL THERAPIES GROUP LLC
Approved: Apr 2, 2001 | RLD: Yes | RS: No | Type: DISCN